FAERS Safety Report 24241446 (Version 1)
Quarter: 2024Q3

REPORT INFORMATION
  Report Type: Spontaneous
  Country: JP (occurrence: JP)
  Receive Date: 20240823
  Receipt Date: 20240823
  Transmission Date: 20241017
  Serious: Yes (Other)
  Sender: TEVA
  Company Number: JP-TEVA-VS-3235613

PATIENT

DRUGS (1)
  1. MODAFINIL [Suspect]
     Active Substance: MODAFINIL
     Indication: Product used for unknown indication
     Dosage: TEN AND SEVERAL TABLETS / DAY
     Route: 048

REACTIONS (3)
  - Depressed level of consciousness [Unknown]
  - Drug dependence [Unknown]
  - Intentional overdose [Unknown]
